FAERS Safety Report 18512312 (Version 2)
Quarter: 2020Q4

REPORT INFORMATION
  Report Type: Spontaneous
  Country: CN (occurrence: CN)
  Receive Date: 20201117
  Receipt Date: 20201120
  Transmission Date: 20210114
  Serious: Yes (Other)
  Sender: FDA-Public Use
  Company Number: CN-BAYER-2020-242510

PATIENT
  Age: 50 Year
  Sex: Male
  Weight: 55 kg

DRUGS (1)
  1. NEXAVAR [Suspect]
     Active Substance: SORAFENIB
     Indication: TARGETED CANCER THERAPY
     Dosage: 0.4 G, BID
     Route: 048
     Dates: start: 20200821, end: 20201024

REACTIONS (6)
  - Hypocalcaemia [None]
  - Platelet count decreased [Recovering/Resolving]
  - Myelosuppression [Recovering/Resolving]
  - Hypoproteinaemia [Recovering/Resolving]
  - Hepatic function abnormal [None]
  - Coagulopathy [None]

NARRATIVE: CASE EVENT DATE: 20201024
